FAERS Safety Report 22074622 (Version 1)
Quarter: 2023Q1

REPORT INFORMATION
  Report Type: Spontaneous
  Country: US (occurrence: None)
  Receive Date: 20230308
  Receipt Date: 20230308
  Transmission Date: 20230418
  Serious: No
  Sender: FDA-Public Use
  Company Number: None

PATIENT

DRUGS (2)
  1. NALOXONE HCL [Suspect]
     Active Substance: NALOXONE HYDROCHLORIDE
     Route: 042
  2. ADENOSINE [Suspect]
     Active Substance: ADENOSINE
     Route: 042

REACTIONS (3)
  - Product label confusion [None]
  - Product packaging confusion [None]
  - Circumstance or information capable of leading to medication error [None]
